FAERS Safety Report 7346657-7 (Version None)
Quarter: 2011Q1

REPORT INFORMATION
  Report Type: 
  Country: None (occurrence: None)
  Receive Date: 20110311
  Receipt Date: 20110302
  Transmission Date: 20110831
  Serious: Yes (Death)
  Sender: FDA-Public Use
  Company Number: IT-CUBIST-2011S1000148

PATIENT
  Sex: Male

DRUGS (1)
  1. CUBICIN [Suspect]
     Indication: PRODUCT USED FOR UNKNOWN INDICATION

REACTIONS (3)
  - MULTI-ORGAN FAILURE [None]
  - FASCIITIS [None]
  - CONCOMITANT DISEASE PROGRESSION [None]
